FAERS Safety Report 13174445 (Version 1)
Quarter: 2017Q1

REPORT INFORMATION
  Report Type: Spontaneous
  Country: JP (occurrence: JP)
  Receive Date: 20170131
  Receipt Date: 20170131
  Transmission Date: 20170428
  Serious: Yes (Hospitalization)
  Sender: FDA-Public Use
  Company Number: JP-GE HEALTHCARE MEDICAL DIAGNOSTICS-OMPQ-PR-1701S-0202

PATIENT
  Age: 52 Year
  Sex: Male

DRUGS (5)
  1. SELOKEN [Concomitant]
     Active Substance: METOPROLOL
  2. OMNIPAQUE [Suspect]
     Active Substance: IOHEXOL
     Indication: DIAGNOSTIC PROCEDURE
  3. DIOVAN [Concomitant]
     Active Substance: VALSARTAN
  4. OMNIPAQUE [Suspect]
     Active Substance: IOHEXOL
     Indication: PRODUCT USED FOR UNKNOWN INDICATION
     Dosage: DOSE NOT REPORTED
     Route: 042
     Dates: start: 20170120, end: 20170120
  5. FEBUXOSTAT. [Concomitant]
     Active Substance: FEBUXOSTAT

REACTIONS (6)
  - Back pain [Unknown]
  - Subarachnoid haemorrhage [Unknown]
  - Oropharyngeal pain [Unknown]
  - Fall [Unknown]
  - Brain contusion [Unknown]
  - Loss of consciousness [Recovering/Resolving]

NARRATIVE: CASE EVENT DATE: 20170120
